FAERS Safety Report 6758779-X (Version None)
Quarter: 2010Q2

REPORT INFORMATION
  Report Type: 
  Country: None (occurrence: None)
  Receive Date: 20100607
  Receipt Date: 20100528
  Transmission Date: 20101027
  Serious: Yes (Other)
  Sender: FDA-Public Use
  Company Number: US-AMGEN-QUU415340

PATIENT
  Sex: Female

DRUGS (11)
  1. EPOGEN [Suspect]
     Indication: RENAL FAILURE CHRONIC
  2. COLACE [Concomitant]
  3. VITAMIN C [Concomitant]
  4. METOPROLOL TARTRATE [Concomitant]
  5. LISINOPRIL [Concomitant]
  6. AMLODIPINE [Concomitant]
  7. SYNTHROID [Concomitant]
  8. PREVACID [Concomitant]
  9. CALCIUM CARBONATE [Concomitant]
  10. IRON [Concomitant]
  11. UNSPECIFIED NUTRITIONAL SUPPLEMENT [Concomitant]

REACTIONS (5)
  - BLOOD PARATHYROID HORMONE INCREASED [None]
  - COMPLICATIONS OF TRANSPLANTED KIDNEY [None]
  - HAEMOGLOBIN DECREASED [None]
  - INFECTION [None]
  - THERAPEUTIC RESPONSE DECREASED [None]
